FAERS Safety Report 9774132 (Version 1)
Quarter: 2013Q4

REPORT INFORMATION
  Report Type: Spontaneous
  Country: NL (occurrence: NL)
  Receive Date: 20131220
  Receipt Date: 20131220
  Transmission Date: 20140711
  Serious: Yes (Hospitalization)
  Sender: FDA-Public Use
  Company Number: NL-AMGEN-NLDSP2013089531

PATIENT
  Age: 26 Year
  Sex: Male

DRUGS (2)
  1. ETANERCEPT [Suspect]
     Indication: ANKYLOSING SPONDYLITIS
     Dosage: 50 MG, WEEKLY
     Route: 058
     Dates: start: 20120701, end: 20131126
  2. ETORICOXIB [Concomitant]
     Indication: ANKYLOSING SPONDYLITIS
     Dosage: 90 MG, UNK
     Route: 048
     Dates: start: 20131010

REACTIONS (1)
  - Diarrhoea [Recovered/Resolved]
